FAERS Safety Report 9982512 (Version 1)
Quarter: 2014Q1

REPORT INFORMATION
  Report Type: Report from Study
  Country: US (occurrence: US)
  Receive Date: 20140307
  Receipt Date: 20140307
  Transmission Date: 20141002
  Serious: No
  Sender: FDA-Public Use
  Company Number: US-ABBVIE-13P-163-1180332-00

PATIENT
  Age: 43 Year
  Sex: Female

DRUGS (10)
  1. HUMIRA [Suspect]
     Indication: COLITIS ULCERATIVE
     Dates: start: 20131031, end: 20131031
  2. HUMIRA [Suspect]
     Dates: start: 20131114, end: 20131114
  3. HUMIRA [Suspect]
     Dates: start: 20131128, end: 20131128
  4. HUMIRA [Suspect]
     Dates: start: 20131212
  5. LIALDA [Concomitant]
     Indication: COLITIS ULCERATIVE
     Dosage: 2 MORNING + 2 EVENING
  6. CELEXA [Concomitant]
     Indication: ANXIETY
     Dosage: MORNING
  7. CELEXA [Concomitant]
     Indication: DEPRESSION
  8. VITAMIN D3 [Concomitant]
     Indication: VITAMIN SUPPLEMENTATION
     Dosage: 2000 1 IN THE AM
  9. MULTIVITAMIN [Concomitant]
     Indication: VITAMIN SUPPLEMENTATION
     Dosage: 1 IN THE AM
  10. AMBIEN [Concomitant]
     Indication: INSOMNIA

REACTIONS (11)
  - Medial tibial stress syndrome [Not Recovered/Not Resolved]
  - Menorrhagia [Not Recovered/Not Resolved]
  - Rash papular [Not Recovered/Not Resolved]
  - Rectal haemorrhage [Unknown]
  - Pain in extremity [Not Recovered/Not Resolved]
  - Muscular weakness [Not Recovered/Not Resolved]
  - Oedema peripheral [Not Recovered/Not Resolved]
  - Joint stiffness [Not Recovered/Not Resolved]
  - Injection site haemorrhage [Recovering/Resolving]
  - Injection site bruising [Recovering/Resolving]
  - Pain in extremity [Not Recovered/Not Resolved]
